FAERS Safety Report 21924322 (Version 4)
Quarter: 2023Q4

REPORT INFORMATION
  Report Type: Spontaneous
  Country: US (occurrence: US)
  Receive Date: 20230130
  Receipt Date: 20231006
  Transmission Date: 20240109
  Serious: No
  Sender: FDA-Public Use
  Company Number: US-SA-SAC20230125001332

PATIENT
  Age: 2 Year
  Sex: Male
  Weight: 14.016 kg

DRUGS (2)
  1. DUPIXENT [Suspect]
     Active Substance: DUPILUMAB
     Indication: Dermatitis atopic
     Dosage: 300 MG, Q4W
     Route: 058
     Dates: start: 20221214
  2. DUPIXENT [Suspect]
     Active Substance: DUPILUMAB
     Dosage: 1 DF, QOW
     Route: 058

REACTIONS (2)
  - Dermatitis atopic [Unknown]
  - Incorrect dose administered [Unknown]

NARRATIVE: CASE EVENT DATE: 20221214
